FAERS Safety Report 12542643 (Version 4)
Quarter: 2019Q3

REPORT INFORMATION
  Report Type: Spontaneous
  Country: US (occurrence: US)
  Receive Date: 20160709
  Receipt Date: 20190903
  Transmission Date: 20191004
  Serious: No
  Sender: FDA-Public Use
  Company Number: US-009507513-1607USA000169

PATIENT
  Age: 40 Year
  Sex: Female

DRUGS (4)
  1. MIRTAZAPINE. [Suspect]
     Active Substance: MIRTAZAPINE
  2. REMERON [Suspect]
     Active Substance: MIRTAZAPINE
     Indication: POOR QUALITY SLEEP
  3. REMERON [Suspect]
     Active Substance: MIRTAZAPINE
     Indication: DEPRESSION
     Dosage: 30 MG, QD
     Route: 048
     Dates: start: 201208
  4. REMERON [Suspect]
     Active Substance: MIRTAZAPINE
     Route: 048

REACTIONS (9)
  - Insomnia [Not Recovered/Not Resolved]
  - Product availability issue [Unknown]
  - Drug ineffective [Unknown]
  - Sleep disorder [Unknown]
  - Pruritus [Unknown]
  - Poor quality sleep [Not Recovered/Not Resolved]
  - Circumstance or information capable of leading to medication error [Unknown]
  - Depression [Unknown]
  - Throat irritation [Unknown]
